FAERS Safety Report 5781918-4 (Version None)
Quarter: 2008Q2

REPORT INFORMATION
  Report Type: 
  Country: None (occurrence: None)
  Receive Date: 20080623
  Receipt Date: 20080613
  Transmission Date: 20081010
  Serious: Yes (Other)
  Sender: FDA-Public Use
  Company Number: B0510904A

PATIENT
  Sex: Male

DRUGS (2)
  1. RETROVIR [Suspect]
     Indication: DRUG USE FOR UNKNOWN INDICATION
     Dosage: 350MG TWICE PER DAY
     Route: 048
     Dates: start: 20070101
  2. LAMIVUDINE [Concomitant]
     Indication: DRUG USE FOR UNKNOWN INDICATION
     Dosage: 100MG PER DAY
     Dates: start: 20070101

REACTIONS (1)
  - BONE MARROW FAILURE [None]
